FAERS Safety Report 6603269-8 (Version None)
Quarter: 2010Q1

REPORT INFORMATION
  Report Type: 
  Country: None (occurrence: None)
  Receive Date: 20100218
  Receipt Date: 20100208
  Transmission Date: 20100710
  Serious: Yes (Congenital Anomaly)
  Sender: FDA-Public Use
  Company Number: 006612

PATIENT

DRUGS (3)
  1. KEPPRA [Suspect]
     Indication: EPILEPSY
     Dosage: TRANSPLACENTAL
     Route: 064
     Dates: start: 20090101
  2. FOLIC ACID [Concomitant]
  3. CARBAMAZEPINE [Concomitant]

REACTIONS (4)
  - CONGENITAL BOWING OF LONG BONES [None]
  - LIMB REDUCTION DEFECT [None]
  - MATERNAL DRUGS AFFECTING FOETUS [None]
  - TALIPES [None]
